FAERS Safety Report 9494798 (Version 2)
Quarter: 2013Q3

REPORT INFORMATION
  Report Type: Spontaneous
  Country: US (occurrence: US)
  Receive Date: 20130903
  Receipt Date: 20130919
  Transmission Date: 20140515
  Serious: No
  Sender: FDA-Public Use
  Company Number: US-PFIZER INC-2013252379

PATIENT
  Age: 61 Year
  Sex: Female
  Weight: 58.5 kg

DRUGS (1)
  1. LYRICA [Suspect]
     Indication: MULTIPLE SCLEROSIS
     Dosage: 75 MG, 2X/DAY
     Dates: start: 201308

REACTIONS (4)
  - Off label use [Unknown]
  - Agitation [Unknown]
  - Nausea [Unknown]
  - Hypovitaminosis [Unknown]
